FAERS Safety Report 15365267 (Version 1)
Quarter: 2018Q3

REPORT INFORMATION
  Report Type: Spontaneous
  Country: US (occurrence: US)
  Receive Date: 20180831
  Receipt Date: 20180831
  Transmission Date: 20181010
  Serious: Yes (Disabling)
  Sender: FDA-Public Use
  Company Number: None

PATIENT
  Age: 40 Year
  Sex: Female
  Weight: 78.75 kg

DRUGS (6)
  1. OMEPRAZOLE. [Concomitant]
     Active Substance: OMEPRAZOLE
  2. JOLESSA [Concomitant]
     Active Substance: ETHINYL ESTRADIOL\LEVONORGESTREL
  3. CITALOPRAM [Concomitant]
     Active Substance: CITALOPRAM HYDROBROMIDE
  4. HUMIRA [Suspect]
     Active Substance: ADALIMUMAB
     Indication: ANKYLOSING SPONDYLITIS
     Dosage: ?          QUANTITY:1 DF DOSAGE FORM;?
     Route: 058
     Dates: start: 20180323, end: 20180410
  5. MULTIVITAMIN [Concomitant]
     Active Substance: VITAMINS
  6. CPAP MELOXICAM [Concomitant]

REACTIONS (6)
  - Dizziness [None]
  - Paraesthesia [None]
  - Fatigue [None]
  - Tremor [None]
  - Radiculopathy [None]
  - Demyelination [None]

NARRATIVE: CASE EVENT DATE: 20180323
